FAERS Safety Report 8374237-3 (Version None)
Quarter: 2012Q2

REPORT INFORMATION
  Report Type: 
  Country: None (occurrence: None)
  Receive Date: 20120521
  Receipt Date: 20120516
  Transmission Date: 20120825
  Serious: Yes (Hospitalization)
  Sender: FDA-Public Use
  Company Number: US-MERCK-1205USA02665

PATIENT
  Sex: Male
  Weight: 103 kg

DRUGS (1)
  1. ZOCOR [Suspect]
     Indication: BLOOD CHOLESTEROL INCREASED
     Route: 048
     Dates: start: 20100601, end: 20120401

REACTIONS (2)
  - BLOOD CHOLESTEROL INCREASED [None]
  - CARDIAC DISORDER [None]
